FAERS Safety Report 13815321 (Version 1)
Quarter: 2017Q3

REPORT INFORMATION
  Report Type: Spontaneous
  Country: US (occurrence: US)
  Receive Date: 20170729
  Receipt Date: 20170729
  Transmission Date: 20171127
  Serious: Yes (Disabling, Other)
  Sender: FDA-Public Use
  Company Number: None

PATIENT
  Age: 60 Year
  Sex: Female
  Weight: 51.75 kg

DRUGS (9)
  1. COMPOUNDED T3 AND T4 [Concomitant]
  2. VITAMIN D3 [Concomitant]
     Active Substance: CHOLECALCIFEROL
  3. BIO ZINC [Concomitant]
  4. ASTRAGALUS [Concomitant]
  5. PROBIOTIC POWDER [Concomitant]
  6. NITROFURANTOIN MONOHYDRATE MACROCRYSTALS [Suspect]
     Active Substance: NITROFURANTOIN\NITROFURANTOIN MONOHYDRATE
     Indication: CYSTITIS
     Dosage: ?          QUANTITY:14 CAPSULE(S);?
     Route: 048
  7. KRILL OIL [Concomitant]
     Active Substance: DIETARY SUPPLEMENT
  8. MULTIVITAMIN [Concomitant]
     Active Substance: VITAMINS
  9. CANDI-BACTIN [Concomitant]

REACTIONS (16)
  - Abdominal pain upper [None]
  - Lymphadenopathy [None]
  - Chest pain [None]
  - Dysphagia [None]
  - Dizziness [None]
  - Gait disturbance [None]
  - Muscular weakness [None]
  - Dyspnoea [None]
  - Pain [None]
  - Pyrexia [None]
  - Cough [None]
  - Influenza like illness [None]
  - Dysgeusia [None]
  - Chills [None]
  - Somnolence [None]
  - Ageusia [None]

NARRATIVE: CASE EVENT DATE: 20170729
